FAERS Safety Report 19907108 (Version 1)
Quarter: 2021Q4

REPORT INFORMATION
  Report Type: Spontaneous
  Country: US (occurrence: US)
  Receive Date: 20211001
  Receipt Date: 20211001
  Transmission Date: 20220304
  Serious: Yes (Death, Hospitalization, Other)
  Sender: FDA-Public Use
  Company Number: US-AMGEN-USASP2021147610

PATIENT
  Age: 49 Year
  Sex: Female

DRUGS (4)
  1. NPLATE [Suspect]
     Active Substance: ROMIPLOSTIM
     Indication: Immune thrombocytopenia
     Dosage: UNK
     Route: 065
  2. AMICAR [Concomitant]
     Active Substance: AMINOCAPROIC ACID
  3. AYGESTIN [Concomitant]
     Active Substance: NORETHINDRONE ACETATE
     Dosage: 5 MILLIGRAM, BID,FOR SEVEN DAYS
     Route: 048
  4. RITUXAN [Concomitant]
     Active Substance: RITUXIMAB
     Indication: Immune thrombocytopenia

REACTIONS (7)
  - Death [Fatal]
  - Respiratory failure [Unknown]
  - Myelosuppression [Unknown]
  - Acute kidney injury [Unknown]
  - Haemoglobin decreased [Unknown]
  - Tumour lysis syndrome [Recovered/Resolved]
  - Transfusion-related acute lung injury [Unknown]
